FAERS Safety Report 5705514-X (Version None)
Quarter: 2008Q2

REPORT INFORMATION
  Report Type: 
  Country: None (occurrence: None)
  Receive Date: 20080411
  Receipt Date: 20080404
  Transmission Date: 20081010
  Serious: Yes (Death)
  Sender: FDA-Public Use
  Company Number: 163-20785-08030118

PATIENT
  Age: 71 Year
  Sex: Female

DRUGS (2)
  1. THALOMID [Suspect]
     Indication: MULTIPLE MYELOMA
     Dosage: 300 MG QHS ORAL; 50-200 MG DAILY ORAL
     Route: 048
     Dates: start: 20020701, end: 20060801
  2. THALOMID [Suspect]
     Indication: MULTIPLE MYELOMA
     Dosage: 300 MG QHS ORAL; 50-200 MG DAILY ORAL
     Route: 048
     Dates: start: 20060901, end: 20080101

REACTIONS (1)
  - CARDIO-RESPIRATORY ARREST [None]
